FAERS Safety Report 7746192-8 (Version None)
Quarter: 2011Q3

REPORT INFORMATION
  Report Type: 
  Country: None (occurrence: None)
  Receive Date: 20110913
  Receipt Date: 20110901
  Transmission Date: 20111222
  Serious: Yes (Death, Hospitalization, Other)
  Sender: FDA-Public Use
  Company Number: JP-SANOFI-AVENTIS-2011SA056449

PATIENT
  Age: 34 Year
  Sex: Female
  Weight: 58 kg

DRUGS (12)
  1. OXALIPLATIN [Suspect]
     Route: 065
     Dates: start: 20091101
  2. FLUOROURACIL [Suspect]
     Dosage: 4000 MG/BODY
     Route: 040
     Dates: start: 20090128
  3. IRINOTECAN HCL [Concomitant]
     Dosage: 240 MG/BODY
     Dates: start: 20090101, end: 20090101
  4. OXALIPLATIN [Suspect]
     Indication: COLON CANCER METASTATIC
     Route: 041
     Dates: start: 20090128
  5. FLUOROURACIL [Suspect]
     Dosage: 2500 MG/BODY
     Route: 040
  6. AVASTIN [Suspect]
     Indication: COLON CANCER METASTATIC
     Dosage: ONCE PER 2 WEEKS
     Route: 041
     Dates: start: 20090310, end: 20091208
  7. DEXAMETHASONE [Concomitant]
     Dates: start: 20090128
  8. KYTRIL [Concomitant]
     Dates: start: 20090128
  9. FLUOROURACIL [Suspect]
     Dosage: 500 MG/BODY
     Route: 040
  10. LEUCOVORIN CALCIUM [Suspect]
     Indication: COLON CANCER METASTATIC
     Route: 041
     Dates: start: 20090101, end: 20090101
  11. FLUOROURACIL [Suspect]
     Indication: COLON CANCER METASTATIC
     Dosage: 600 MG/BODY
     Route: 040
     Dates: start: 20090128
  12. FLUOROURACIL [Suspect]
     Route: 065
     Dates: start: 20091101

REACTIONS (7)
  - DISEASE PROGRESSION [None]
  - NERVOUS SYSTEM DISORDER [None]
  - VOMITING [None]
  - HYPERAMMONAEMIA [None]
  - DEHYDRATION [None]
  - DECREASED APPETITE [None]
  - DEEP VEIN THROMBOSIS [None]
